FAERS Safety Report 9378194 (Version 1)
Quarter: 2013Q3

REPORT INFORMATION
  Report Type: Spontaneous
  Country: JP (occurrence: JP)
  Receive Date: 20130701
  Receipt Date: 20130701
  Transmission Date: 20140515
  Serious: Yes (Other)
  Sender: FDA-Public Use
  Company Number: JP-GLAXOSMITHKLINE-B0903994A

PATIENT
  Sex: Female

DRUGS (2)
  1. SERETIDE (50MCG/250MCG) [Suspect]
     Indication: EMPHYSEMA
     Dosage: 250MCG TWICE PER DAY
     Route: 055
     Dates: start: 201305
  2. ANTIHYPERTENSIVES [Concomitant]
     Indication: HYPERTENSION
     Route: 048

REACTIONS (8)
  - Retinal haemorrhage [Unknown]
  - Dysphonia [Unknown]
  - Blood pressure increased [Unknown]
  - Neck pain [Unknown]
  - Musculoskeletal pain [Unknown]
  - Back pain [Unknown]
  - Chest pain [Unknown]
  - Cough [Unknown]
